FAERS Safety Report 13482732 (Version 2)
Quarter: 2017Q3

REPORT INFORMATION
  Report Type: Report from Study
  Country: US (occurrence: US)
  Receive Date: 20170424
  Receipt Date: 20170728
  Transmission Date: 20171127
  Serious: No
  Sender: FDA-Public Use
  Company Number: US-AMGEN-USASL2017033692

PATIENT
  Age: 32 Year
  Sex: Female

DRUGS (3)
  1. ZETIA [Concomitant]
     Active Substance: EZETIMIBE
     Dosage: UNK
     Dates: start: 201612, end: 201701
  2. REPATHA [Suspect]
     Active Substance: EVOLOCUMAB
     Dosage: 140 MG, Q2WK
     Route: 065
  3. REPATHA [Suspect]
     Active Substance: EVOLOCUMAB
     Indication: TYPE IIA HYPERLIPIDAEMIA
     Dosage: 420 MG, QMO
     Route: 065
     Dates: start: 201612

REACTIONS (5)
  - Pain in extremity [Unknown]
  - Muscle spasms [Unknown]
  - Fatigue [Unknown]
  - Dyspnoea [Unknown]
  - Drug dose omission [Unknown]

NARRATIVE: CASE EVENT DATE: 2017
